FAERS Safety Report 17677410 (Version 2)
Quarter: 2020Q2

REPORT INFORMATION
  Report Type: Spontaneous
  Country: US (occurrence: US)
  Receive Date: 20200416
  Receipt Date: 20200417
  Transmission Date: 20200714
  Serious: Yes (Other)
  Sender: FDA-Public Use
  Company Number: US-VIFOR (INTERNATIONAL) INC.-VIT-2020-04902

PATIENT
  Age: 79 Year
  Sex: Male
  Weight: 63.5 kg

DRUGS (15)
  1. COENZYME Q10 [Concomitant]
     Active Substance: UBIDECARENONE
  2. MULTI-VITE [Concomitant]
  3. SIMVASTATIN. [Concomitant]
     Active Substance: SIMVASTATIN
  4. MAGNESIUM [Concomitant]
     Active Substance: MAGNESIUM
  5. MELATONIN [Concomitant]
     Active Substance: MELATONIN
  6. VITAMIN D3 [Concomitant]
     Active Substance: CHOLECALCIFEROL
  7. LEVOTHYROXIN [Concomitant]
     Active Substance: LEVOTHYROXINE
  8. AMITRIPTYLIN [Concomitant]
     Active Substance: AMITRIPTYLINE
  9. BACLOFEN. [Concomitant]
     Active Substance: BACLOFEN
  10. GABAPENTIN. [Concomitant]
     Active Substance: GABAPENTIN
  11. REQUIP [Concomitant]
     Active Substance: ROPINIROLE HYDROCHLORIDE
  12. HYDROXYUREA. [Concomitant]
     Active Substance: HYDROXYUREA
  13. VELTASSA [Suspect]
     Active Substance: PATIROMER
     Indication: HYPERKALAEMIA
     Route: 048
     Dates: start: 20161122
  14. METOPROLOL. [Concomitant]
     Active Substance: METOPROLOL
  15. NOVOLIN NOS [Concomitant]
     Active Substance: INSULIN HUMAN

REACTIONS (3)
  - Influenza [Recovered/Resolved]
  - Pneumonia [Recovered/Resolved]
  - Urinary tract infection [Recovered/Resolved]

NARRATIVE: CASE EVENT DATE: 202001
